FAERS Safety Report 8525296-6 (Version None)
Quarter: 2012Q3

REPORT INFORMATION
  Report Type: 
  Country: None (occurrence: None)
  Receive Date: 20120720
  Receipt Date: 20120718
  Transmission Date: 20120928
  Serious: Yes (Other)
  Sender: FDA-Public Use
  Company Number: PHHY2012AR043660

PATIENT
  Age: 35 Year
  Sex: Female

DRUGS (2)
  1. GILENYA [Suspect]
     Route: 048
     Dates: end: 20120401
  2. GILENYA [Suspect]
     Dosage: UNK
     Route: 048
     Dates: end: 20120717

REACTIONS (1)
  - THROMBOCYTOPENIA [None]
